FAERS Safety Report 9291631 (Version 2)
Quarter: 2013Q2

REPORT INFORMATION
  Report Type: Spontaneous
  Country: AU (occurrence: AU)
  Receive Date: 20130515
  Receipt Date: 20130628
  Transmission Date: 20140414
  Serious: Yes (Hospitalization)
  Sender: FDA-Public Use
  Company Number: AU-009507513-1305AUS008237

PATIENT
  Age: 17 Year
  Sex: Female

DRUGS (1)
  1. IMPLANON NXT [Suspect]
     Dosage: UNK
     Route: 059

REACTIONS (2)
  - Metrorrhagia [Unknown]
  - Device breakage [Unknown]
